FAERS Safety Report 17292394 (Version 1)
Quarter: 2020Q1

REPORT INFORMATION
  Report Type: Spontaneous
  Country: JP (occurrence: JP)
  Receive Date: 20200121
  Receipt Date: 20200121
  Transmission Date: 20200409
  Serious: Yes (Life-Threatening)
  Sender: FDA-Public Use
  Company Number: JP-BAYER-2019-233953

PATIENT
  Age: 7 Decade
  Sex: Male

DRUGS (1)
  1. IOPROMIDE. [Suspect]
     Active Substance: IOPROMIDE
     Indication: SCAN WITH CONTRAST
     Dosage: 100 ML, ONCE
     Route: 042
     Dates: start: 20191218, end: 20191218

REACTIONS (3)
  - Respiratory arrest [Recovered/Resolved]
  - Snoring [Unknown]
  - Loss of consciousness [Recovered/Resolved]

NARRATIVE: CASE EVENT DATE: 20191218
